FAERS Safety Report 4722436-1 (Version None)
Quarter: 2005Q3

REPORT INFORMATION
  Report Type: 
  Country: None (occurrence: None)
  Receive Date: 20050722
  Receipt Date: 20050419
  Transmission Date: 20060218
  Serious: No
  Sender: FDA-Public Use
  Company Number: US-GLAXOSMITHKLINE-A0554818A

PATIENT
  Age: 64 Year
  Sex: Female

DRUGS (5)
  1. AVANDIA [Suspect]
     Dosage: 2MG PER DAY
     Route: 048
     Dates: start: 20050418, end: 20050418
  2. ZOCOR [Concomitant]
  3. AVAPRO [Concomitant]
  4. GLYBURIDE [Concomitant]
  5. METFORMIN [Concomitant]

REACTIONS (1)
  - ARRHYTHMIA [None]
